FAERS Safety Report 8708925 (Version 2)
Quarter: 2013Q4

REPORT INFORMATION
  Report Type: Spontaneous
  Country: US (occurrence: US)
  Receive Date: 20120806
  Receipt Date: 20131101
  Transmission Date: 20140711
  Serious: No
  Sender: FDA-Public Use
  Company Number: US-009507513-1207USA011829

PATIENT
  Sex: Female

DRUGS (6)
  1. ZOCOR [Suspect]
     Route: 048
  2. CHLORTHALIDONE [Concomitant]
     Indication: BLOOD PRESSURE
     Dosage: 0.5 DF, QD
  3. LISINOPRIL [Concomitant]
     Indication: BLOOD PRESSURE
     Dosage: 1 DF, QD
     Route: 048
  4. ASPIRIN [Concomitant]
     Indication: CARDIOVASCULAR INSUFFICIENCY
     Dosage: 1 DF, UNK
     Route: 048
  5. CETIRIZINE HYDROCHLORIDE [Concomitant]
     Indication: HYPERSENSITIVITY
     Dosage: 1 DF, QD
     Route: 048
  6. METFORMIN [Concomitant]
     Indication: DIABETES MELLITUS
     Dosage: 1 DF, UNK
     Route: 048

REACTIONS (2)
  - Drug hypersensitivity [Unknown]
  - Asthenia [Unknown]
